FAERS Safety Report 15362066 (Version 1)
Quarter: 2018Q3

REPORT INFORMATION
  Report Type: Spontaneous
  Country: US (occurrence: US)
  Receive Date: 20180831
  Receipt Date: 20180831
  Transmission Date: 20181010
  Serious: Yes (Other)
  Sender: FDA-Public Use
  Company Number: None

PATIENT
  Age: 58 Year
  Sex: Female
  Weight: 85.73 kg

DRUGS (1)
  1. DESVENLAFAXINE 50MG [Suspect]
     Active Substance: DESVENLAFAXINE
     Indication: DEPRESSION
     Route: 048

REACTIONS (10)
  - Constipation [None]
  - Product substitution issue [None]
  - Drug ineffective [None]
  - Fluid retention [None]
  - Anger [None]
  - Headache [None]
  - Mood swings [None]
  - Depression [None]
  - Abdominal pain upper [None]
  - Therapy cessation [None]

NARRATIVE: CASE EVENT DATE: 20170913
